FAERS Safety Report 22343117 (Version 1)
Quarter: 2023Q2

REPORT INFORMATION
  Report Type: Spontaneous
  Country: US (occurrence: US)
  Receive Date: 20230519
  Receipt Date: 20230519
  Transmission Date: 20230721
  Serious: Yes (Other)
  Sender: FDA-Public Use
  Company Number: US-drreddys-SPO/USA/23/0164859

PATIENT
  Age: 23 Year
  Sex: Female

DRUGS (1)
  1. ZENATANE [Suspect]
     Active Substance: ISOTRETINOIN
     Indication: Product used for unknown indication
     Dosage: RMA ISSUE DATE: 11 FEBRUARY 2023 11:50:26 AM, 14 MARCH 2023 04:22:54 PM, 10 APRIL 2023 11:36:05 AM

REACTIONS (2)
  - Anxiety [Unknown]
  - Mood swings [Unknown]
